FAERS Safety Report 9380899 (Version 1)
Quarter: 2013Q3

REPORT INFORMATION
  Report Type: Spontaneous
  Country: GR (occurrence: GR)
  Receive Date: 20130703
  Receipt Date: 20130703
  Transmission Date: 20140515
  Serious: Yes (Other)
  Sender: FDA-Public Use
  Company Number: GR-JNJFOC-20130611372

PATIENT
  Age: 60 Year
  Sex: Male

DRUGS (3)
  1. IMODIUM [Suspect]
     Indication: DIARRHOEA
     Route: 048
  2. PHENYTOIN PHENOBARBITAL [Concomitant]
     Indication: EPILEPSY
     Route: 065
  3. PROSCAR [Concomitant]
     Indication: PROSTATIC DISORDER
     Route: 065

REACTIONS (2)
  - Haematuria [Recovering/Resolving]
  - Urine abnormality [Recovering/Resolving]
